FAERS Safety Report 8024453-5 (Version None)
Quarter: 2012Q1

REPORT INFORMATION
  Report Type: 
  Country: None (occurrence: None)
  Receive Date: 20120105
  Receipt Date: 20111227
  Transmission Date: 20120608
  Serious: Yes (Hospitalization)
  Sender: FDA-Public Use
  Company Number: FR-NOVOPROD-332693

PATIENT

DRUGS (14)
  1. EUPRESSYL                          /00631801/ [Concomitant]
     Dates: start: 20110529
  2. AMLODIPINE BESYLATE [Concomitant]
  3. SOLUPRED                           /00016201/ [Concomitant]
     Dates: start: 20110604, end: 20110627
  4. LOCOID [Concomitant]
  5. SOLUPRED                           /00016201/ [Concomitant]
     Dosage: UNK
     Dates: start: 20110630
  6. ATORVASTATIN CALCIUM [Concomitant]
     Dosage: 10 MG, QD
     Dates: start: 20110530, end: 20110624
  7. KEPPRA [Concomitant]
  8. SOLU-MEDROL [Concomitant]
     Dates: start: 20110601, end: 20110604
  9. KAYEXALATE [Concomitant]
     Dosage: UNK
     Dates: start: 20110603, end: 20110626
  10. RAMIPRIL [Concomitant]
     Dates: start: 20110604, end: 20110614
  11. CITALOPRAM HYDROBROMIDE [Concomitant]
  12. REPAGLINIDE [Suspect]
     Indication: DIABETES MELLITUS
     Dosage: UNK
     Route: 065
     Dates: start: 20110603, end: 20110626
  13. FUCIDINE                           /00065701/ [Concomitant]
  14. SOLU-MEDROL [Concomitant]
     Dosage: UNK
     Dates: start: 20110626, end: 20110629

REACTIONS (1)
  - NEPHROPATHY [None]
